FAERS Safety Report 16068755 (Version 1)
Quarter: 2019Q1

REPORT INFORMATION
  Report Type: Spontaneous
  Country: US (occurrence: US)
  Receive Date: 20190313
  Receipt Date: 20190313
  Transmission Date: 20190418
  Serious: No
  Sender: FDA-Public Use
  Company Number: US-BAUSCH-BL-2019-006477

PATIENT
  Sex: Female

DRUGS (7)
  1. TOPICORT [Suspect]
     Active Substance: DESOXIMETASONE
     Indication: DERMATITIS ATOPIC
     Route: 061
  2. PREDNISONE. [Suspect]
     Active Substance: PREDNISONE
     Dosage: TAPERED DOWN OFF
     Route: 065
  3. ELIDEL [Suspect]
     Active Substance: PIMECROLIMUS
     Indication: DERMATITIS ATOPIC
     Route: 061
  4. HYDROXYZINE [Concomitant]
     Active Substance: HYDROXYZINE HYDROCHLORIDE
     Indication: INSOMNIA
  5. CLOBETASOL [Suspect]
     Active Substance: CLOBETASOL
     Dosage: MORE CLOBETASOL TO TREAT ATOPIC DERMATITIS
     Route: 061
  6. PREDNISONE. [Suspect]
     Active Substance: PREDNISONE
     Indication: DERMATITIS ATOPIC
     Dosage: INITIAL REGIMEN
     Route: 065
  7. CLOBETASOL [Suspect]
     Active Substance: CLOBETASOL
     Indication: DERMATITIS ATOPIC
     Route: 061

REACTIONS (3)
  - Condition aggravated [Unknown]
  - Dermatitis atopic [Unknown]
  - Drug ineffective [Unknown]
